FAERS Safety Report 14994423 (Version 1)
Quarter: 2018Q2

REPORT INFORMATION
  Report Type: Spontaneous
  Country: US (occurrence: US)
  Receive Date: 20180521
  Receipt Date: 20180521
  Transmission Date: 20180711
  Serious: Yes (Other)
  Sender: FDA-Public Use
  Company Number: None

PATIENT
  Age: 58 Year
  Sex: Female
  Weight: 83.25 kg

DRUGS (1)
  1. PROLIA [Suspect]
     Active Substance: DENOSUMAB
     Indication: OSTEOPOROSIS
     Dates: start: 20180504, end: 20180504

REACTIONS (8)
  - Tetany [None]
  - Abnormal behaviour [None]
  - Cognitive disorder [None]
  - Disorientation [None]
  - End stage renal disease [None]
  - Disturbance in attention [None]
  - Blood calcium decreased [None]
  - Asthenia [None]

NARRATIVE: CASE EVENT DATE: 20180504
